FAERS Safety Report 21324787 (Version 1)
Quarter: 2022Q3

REPORT INFORMATION
  Report Type: Spontaneous
  Country: US (occurrence: US)
  Receive Date: 20220912
  Receipt Date: 20220912
  Transmission Date: 20221026
  Serious: No
  Sender: FDA-Public Use
  Company Number: US-INSUD PHARMA-2209US03530

PATIENT

DRUGS (2)
  1. CLOBETASOL [Suspect]
     Active Substance: CLOBETASOL
     Indication: Pruritus
     Dosage: UNK
     Route: 061
  2. CLOBETASOL [Suspect]
     Active Substance: CLOBETASOL
     Indication: Discomfort

REACTIONS (2)
  - Blister [Unknown]
  - Drug ineffective [Unknown]
